FAERS Safety Report 26117960 (Version 1)
Quarter: 2025Q4

REPORT INFORMATION
  Report Type: Spontaneous
  Country: US (occurrence: US)
  Receive Date: 20251203
  Receipt Date: 20251203
  Transmission Date: 20260118
  Serious: Yes (Other)
  Sender: AMGEN
  Company Number: US-AMGEN-USASP2025235812

PATIENT

DRUGS (1)
  1. BEVACIZUMAB [Suspect]
     Active Substance: BEVACIZUMAB
     Indication: Acoustic neuroma
     Dosage: UNK
     Route: 065

REACTIONS (10)
  - Acoustic neuroma [Unknown]
  - Colitis [Unknown]
  - Haemorrhage intracranial [Unknown]
  - Hypoacusis [Unknown]
  - Proteinuria [Unknown]
  - Hypertension [Unknown]
  - Diarrhoea [Unknown]
  - Rash [Unknown]
  - Drug effective for unapproved indication [Unknown]
  - Off label use [Unknown]
